FAERS Safety Report 4963578-5 (Version None)
Quarter: 2006Q1

REPORT INFORMATION
  Report Type: 
  Country: None (occurrence: None)
  Receive Date: 20060330
  Receipt Date: 20060322
  Transmission Date: 20060701
  Serious: Yes (Other)
  Sender: FDA-Public Use
  Company Number: 2006-03-0860

PATIENT
  Age: 51 Year
  Sex: Male

DRUGS (8)
  1. INTRON A [Suspect]
     Indication: HEPATITIS C
     Dosage: INTRAMUSCULAR
     Route: 030
  2. INTRON A [Suspect]
     Indication: HEPATITIS C
     Dosage: INTRAMUSCULAR
     Route: 030
  3. INTRON A [Suspect]
     Indication: HEPATITIS C
     Dosage: INTRAMUSCULAR
     Route: 030
  4. REBETOL [Suspect]
     Indication: HEPATITIS C
     Dosage: ORAL
     Route: 048
  5. REBETOL [Suspect]
     Indication: HEPATITIS C
     Dosage: ORAL
     Route: 048
  6. REBETOL [Suspect]
     Indication: HEPATITIS C
     Dosage: ORAL
     Route: 048
  7. MYCOPHENOLATE MOFETIL [Suspect]
     Indication: TRANSPLANT REJECTION
  8. TACROLIMUS [Concomitant]

REACTIONS (2)
  - APLASIA PURE RED CELL [None]
  - NORMOCHROMIC NORMOCYTIC ANAEMIA [None]
